FAERS Safety Report 9130385 (Version 1)
Quarter: 2013Q1

REPORT INFORMATION
  Report Type: Spontaneous
  Country: US (occurrence: US)
  Receive Date: 20130301
  Receipt Date: 20130301
  Transmission Date: 20140127
  Serious: Yes (Other)
  Sender: FDA-Public Use
  Company Number: US-009507513-1302USA011169

PATIENT
  Age: 78 Year
  Sex: Female

DRUGS (7)
  1. SIMVASTATIN [Suspect]
     Indication: HYPERCHOLESTEROLAEMIA
  2. LOVASTATIN [Suspect]
     Indication: HYPERCHOLESTEROLAEMIA
     Route: 048
  3. RED YEAST [Concomitant]
  4. CHOLESTYRAMINE RESIN [Concomitant]
  5. CRESTOR [Concomitant]
  6. LIPITOR [Concomitant]
  7. PRAVACHOL [Concomitant]

REACTIONS (6)
  - Myocardial infarction [Unknown]
  - Myalgia [Unknown]
  - Blood cholesterol increased [Unknown]
  - Herpes zoster [Unknown]
  - Dizziness [Unknown]
  - Malaise [Unknown]
